FAERS Safety Report 5604546-X (Version None)
Quarter: 2008Q1

REPORT INFORMATION
  Report Type: 
  Country: None (occurrence: None)
  Receive Date: 20080124
  Receipt Date: 20080124
  Transmission Date: 20080703
  Serious: Yes (Life-Threatening, Hospitalization, Other)
  Sender: FDA-Public Use
  Company Number: None

PATIENT
  Age: 75 Year
  Sex: Male
  Weight: 89.8122 kg

DRUGS (1)
  1. CHANTIX [Suspect]
     Indication: SMOKING CESSATION THERAPY
     Dosage: 2 EACH DAY PO
     Route: 048
     Dates: start: 20070313, end: 20070630

REACTIONS (5)
  - CONVULSION [None]
  - DIABETES MELLITUS [None]
  - DRY MOUTH [None]
  - DRY SKIN [None]
  - HEADACHE [None]
